FAERS Safety Report 20517531 (Version 6)
Quarter: 2022Q3

REPORT INFORMATION
  Report Type: Report from Study
  Country: US (occurrence: US)
  Receive Date: 20220225
  Receipt Date: 20220721
  Transmission Date: 20221026
  Serious: Yes (Hospitalization)
  Sender: FDA-Public Use
  Company Number: US-NOVARTISTESTPH-NVSC2022US043423

PATIENT
  Sex: Male

DRUGS (1)
  1. ENTRESTO [Suspect]
     Active Substance: SACUBITRIL\VALSARTAN
     Indication: Product used for unknown indication
     Dosage: UNK (24/26 MG)
     Route: 065

REACTIONS (8)
  - Head injury [Unknown]
  - Fall [Unknown]
  - Asthenia [Unknown]
  - Dizziness [Unknown]
  - Hypoacusis [Unknown]
  - Limb discomfort [Unknown]
  - Feeling abnormal [Unknown]
  - Gait disturbance [Unknown]
